FAERS Safety Report 4879426-8 (Version None)
Quarter: 2005Q4

REPORT INFORMATION
  Report Type: 
  Country: None (occurrence: None)
  Receive Date: 20051209
  Receipt Date: 20050502
  Transmission Date: 20060501
  Serious: Yes (Death, Other)
  Sender: FDA-Public Use
  Company Number: 2011891

PATIENT
  Age: 21 Year
  Sex: Male

DRUGS (2)
  1. OXYCONTIN [Suspect]
     Dates: start: 19990101, end: 20010601
  2. OXYCONTIN [Suspect]
     Dosage: ORAL
     Route: 048
     Dates: start: 19990101, end: 20010601

REACTIONS (5)
  - DRUG ABUSER [None]
  - DRUG DEPENDENCE [None]
  - DRUG WITHDRAWAL SYNDROME [None]
  - EUPHORIC MOOD [None]
  - OVERDOSE [None]
